FAERS Safety Report 21227470 (Version 1)
Quarter: 2022Q3

REPORT INFORMATION
  Report Type: Other
  Country: US (occurrence: None)
  Receive Date: 20220818
  Receipt Date: 20220818
  Transmission Date: 20221026
  Serious: Yes (Other)
  Sender: FDA-Public Use
  Company Number: US-ROCHE-3159884

PATIENT
  Age: 30 Year
  Sex: Female
  Weight: 118.04 kg

DRUGS (1)
  1. OCREVUS [Suspect]
     Active Substance: OCRELIZUMAB
     Indication: Relapsing-remitting multiple sclerosis
     Dosage: INFUSE 300MG DAY 1 + DAY 15, INFUSE 600 MG ONCE 6 MONTHS
     Route: 042

REACTIONS (6)
  - Hypoaesthesia [Recovered/Resolved]
  - Maternal exposure before pregnancy [Unknown]
  - Depression [Recovered/Resolved]
  - Weight increased [Recovering/Resolving]
  - Fungal infection [Recovered/Resolved]
  - Vaginal infection [Recovered/Resolved]

NARRATIVE: CASE EVENT DATE: 20211201
